FAERS Safety Report 24366911 (Version 1)
Quarter: 2024Q3

REPORT INFORMATION
  Report Type: Report from Study
  Country: US (occurrence: US)
  Receive Date: 20240926
  Receipt Date: 20240926
  Transmission Date: 20241017
  Serious: Yes (Other)
  Sender: ABBVIE
  Company Number: US-ABBVIE-5933561

PATIENT
  Sex: Female

DRUGS (1)
  1. HUMIRA [Suspect]
     Active Substance: ADALIMUMAB
     Indication: Uveitis
     Route: 058
     Dates: start: 20240502

REACTIONS (3)
  - Cataract [Unknown]
  - Diplopia [Recovering/Resolving]
  - Cataract operation complication [Unknown]

NARRATIVE: CASE EVENT DATE: 20240101
